FAERS Safety Report 16772132 (Version 1)
Quarter: 2019Q3

REPORT INFORMATION
  Report Type: Spontaneous
  Country: FR (occurrence: FR)
  Receive Date: 20190904
  Receipt Date: 20190904
  Transmission Date: 20191005
  Serious: Yes (Other)
  Sender: FDA-Public Use
  Company Number: FR-PFIZER INC-2019371573

PATIENT
  Age: 36 Year

DRUGS (1)
  1. OXALIPLATIN. [Suspect]
     Active Substance: OXALIPLATIN
     Dosage: 160 MG, UNK (EVERY 30 MIN) (VOLUME: 300 ML)

REACTIONS (3)
  - Hyperhidrosis [Recovering/Resolving]
  - Incorrect drug administration rate [Unknown]
  - Syncope [Recovering/Resolving]
